FAERS Safety Report 22180659 (Version 1)
Quarter: 2023Q2

REPORT INFORMATION
  Report Type: Spontaneous
  Country: US (occurrence: None)
  Receive Date: 20230405
  Receipt Date: 20230405
  Transmission Date: 20230722
  Serious: Yes (Hospitalization)
  Sender: FDA-Public Use
  Company Number: None

PATIENT
  Age: 50 Year
  Sex: Female
  Weight: 41 kg

DRUGS (1)
  1. BELATACEPT [Suspect]
     Active Substance: BELATACEPT
     Indication: Renal transplant
     Dosage: OTHER FREQUENCY : EVERY 28 DAYS;?
     Route: 042
     Dates: start: 20230221

REACTIONS (19)
  - Dyspnoea [None]
  - Orthopnoea [None]
  - Wheezing [None]
  - Oedema [None]
  - Acute kidney injury [None]
  - Hypertension [None]
  - Anxiety [None]
  - Haematoma [None]
  - Perinephric collection [None]
  - Cellulitis [None]
  - Pleural effusion [None]
  - Urinary tract infection [None]
  - Anaemia [None]
  - Metabolic acidosis [None]
  - Hypotension [None]
  - Ileus [None]
  - Abdominal distension [None]
  - Deep vein thrombosis [None]
  - Bacterial infection [None]

NARRATIVE: CASE EVENT DATE: 20230324
